FAERS Safety Report 12439227 (Version 1)
Quarter: 2016Q2

REPORT INFORMATION
  Report Type: Spontaneous
  Country: US (occurrence: US)
  Receive Date: 20160606
  Receipt Date: 20160606
  Transmission Date: 20160815
  Serious: No
  Sender: FDA-Public Use
  Company Number: US-PFIZER INC-2016283742

PATIENT
  Age: 17 Month
  Sex: Male

DRUGS (1)
  1. BICILLIN C-R 900/300 [Suspect]
     Active Substance: PENICILLIN G BENZATHINE\PENICILLIN G PROCAINE
     Indication: STREPTOCOCCAL INFECTION
     Dosage: 600000 IU, 1X/DAY
     Route: 030
     Dates: start: 20160509

REACTIONS (2)
  - Wrong technique in product usage process [Unknown]
  - Pain [Recovered/Resolved]

NARRATIVE: CASE EVENT DATE: 20160509
